FAERS Safety Report 6041644-3 (Version None)
Quarter: 2009Q1

REPORT INFORMATION
  Report Type: 
  Country: None (occurrence: None)
  Receive Date: 20090116
  Receipt Date: 20081029
  Transmission Date: 20090719
  Serious: No
  Sender: FDA-Public Use
  Company Number: US-BRISTOL-MYERS SQUIBB COMPANY-14388276

PATIENT
  Age: 17 Year
  Sex: Female

DRUGS (2)
  1. ABILIFY [Suspect]
     Indication: AFFECTIVE DISORDER
     Dosage: STARTED 2 1/2 MONTHS AGO; DOSE DECREASED TO 4MG DAILY AND LATER DECREASED TO 2MG DAILY
  2. LAMICTAL [Concomitant]

REACTIONS (2)
  - MUSCLE SPASMS [None]
  - TREMOR [None]
